FAERS Safety Report 13796978 (Version 1)
Quarter: 2017Q3

REPORT INFORMATION
  Report Type: Spontaneous
  Country: GB (occurrence: GB)
  Receive Date: 20170726
  Receipt Date: 20170726
  Transmission Date: 20171127
  Serious: Yes (Hospitalization)
  Sender: FDA-Public Use
  Company Number: GB-BEH-2017082261

PATIENT
  Age: 48 Year

DRUGS (2)
  1. PRIVIGEN [Suspect]
     Active Substance: HUMAN IMMUNOGLOBULIN G
     Indication: CHRONIC INFLAMMATORY DEMYELINATING POLYRADICULONEUROPATHY
     Dosage: 20 G, QD
     Route: 042
     Dates: start: 20170604, end: 20170606
  2. DALTEPARIN [Concomitant]
     Active Substance: DALTEPARIN
     Dosage: 500 IU, QD
     Route: 058
     Dates: start: 20170704, end: 20170706

REACTIONS (4)
  - Deep vein thrombosis [Recovering/Resolving]
  - Peripheral swelling [Recovering/Resolving]
  - Dyspnoea [Recovering/Resolving]
  - Pulmonary embolism [Recovering/Resolving]

NARRATIVE: CASE EVENT DATE: 20170604
